FAERS Safety Report 22882369 (Version 3)
Quarter: 2024Q1

REPORT INFORMATION
  Report Type: Other
  Country: CA (occurrence: CA)
  Receive Date: 20230830
  Receipt Date: 20240213
  Transmission Date: 20240410
  Serious: Yes (Other)
  Sender: FDA-Public Use
  Company Number: CA-APOTEX-2023AP012643

PATIENT
  Age: 21 Year
  Sex: Female

DRUGS (33)
  1. BUSULFAN [Suspect]
     Active Substance: BUSULFAN
     Indication: Prophylaxis against transplant rejection
     Dosage: UNK
     Route: 065
  2. BUSULFAN [Suspect]
     Active Substance: BUSULFAN
     Indication: Bone marrow conditioning regimen
  3. VALGANCICLOVIR [Suspect]
     Active Substance: VALGANCICLOVIR
     Indication: Cytomegalovirus chorioretinitis
     Dosage: 900 MILLIGRAM, BID
     Route: 048
  4. METHOTREXATE [Suspect]
     Active Substance: METHOTREXATE
     Indication: Bone marrow conditioning regimen
     Dosage: UNK
     Route: 065
  5. CYCLOPHOSPHAMIDE [Suspect]
     Active Substance: CYCLOPHOSPHAMIDE
     Indication: Prophylaxis against transplant rejection
     Dosage: UNK
     Route: 065
  6. CYCLOPHOSPHAMIDE [Suspect]
     Active Substance: CYCLOPHOSPHAMIDE
     Indication: Bone marrow conditioning regimen
  7. LAPINE T-LYMPHOCYTE IMMUNE GLOBULIN [Suspect]
     Active Substance: LAPINE T-LYMPHOCYTE IMMUNE GLOBULIN
     Indication: Bone marrow conditioning regimen
     Dosage: UNK
     Route: 065
  8. CYTARABINE [Suspect]
     Active Substance: CYTARABINE
     Indication: Prophylaxis against transplant rejection
     Dosage: UNK
     Route: 065
  9. CYTARABINE [Suspect]
     Active Substance: CYTARABINE
     Indication: Acute myeloid leukaemia
     Dosage: UNK
     Route: 037
  10. DAUNORUBICIN HYDROCHLORIDE [Suspect]
     Active Substance: DAUNORUBICIN HYDROCHLORIDE
     Indication: Prophylaxis against transplant rejection
     Dosage: UNK
     Route: 065
  11. DAUNORUBICIN HYDROCHLORIDE [Suspect]
     Active Substance: DAUNORUBICIN HYDROCHLORIDE
     Indication: Acute myeloid leukaemia
  12. FLUDARABINE PHOSPHATE [Suspect]
     Active Substance: FLUDARABINE PHOSPHATE
     Indication: Prophylaxis against transplant rejection
     Dosage: UNK
     Route: 065
  13. FLUDARABINE PHOSPHATE [Suspect]
     Active Substance: FLUDARABINE PHOSPHATE
     Indication: Bone marrow conditioning regimen
  14. GANCICLOVIR [Suspect]
     Active Substance: GANCICLOVIR
     Indication: Varicella zoster virus infection
     Dosage: 5 MILLIGRAM, Q.O.D.
     Route: 042
  15. GANCICLOVIR [Suspect]
     Active Substance: GANCICLOVIR
     Indication: Cytomegalovirus infection
     Dosage: 2 MILLIGRAM
     Route: 050
  16. GANCICLOVIR [Suspect]
     Active Substance: GANCICLOVIR
     Indication: Cytomegalovirus chorioretinitis
  17. RITUXIMAB [Suspect]
     Active Substance: RITUXIMAB
     Indication: Epstein-Barr virus infection
     Dosage: UNK
     Route: 065
  18. ACYCLOVIR [Concomitant]
     Active Substance: ACYCLOVIR
     Indication: Product used for unknown indication
     Dosage: 800 MILLIGRAM, BID
     Route: 048
  19. AMOXICILLIN\CLAVULANIC ACID [Concomitant]
     Active Substance: AMOXICILLIN\CLAVULANIC ACID
     Indication: Pneumonia
     Dosage: UNK
     Route: 065
  20. AMOXICILLIN\CLAVULANIC ACID [Concomitant]
     Active Substance: AMOXICILLIN\CLAVULANIC ACID
     Indication: Febrile neutropenia
  21. BECLOMETHASONE [Concomitant]
     Active Substance: BECLOMETHASONE
     Indication: Graft versus host disease
     Dosage: 3 MILLIGRAM, QID
     Route: 048
  22. BUDESONIDE [Concomitant]
     Active Substance: BUDESONIDE
     Indication: Graft versus host disease
     Dosage: 1 MILLIGRAM, TID
     Route: 048
  23. CIPROFLOXACIN [Concomitant]
     Active Substance: CIPROFLOXACIN
     Indication: Pneumonia
     Dosage: UNK
     Route: 065
  24. CIPROFLOXACIN [Concomitant]
     Active Substance: CIPROFLOXACIN
     Indication: Febrile neutropenia
  25. FLUCONAZOLE [Concomitant]
     Active Substance: FLUCONAZOLE
     Indication: Product used for unknown indication
     Dosage: 400 MILLIGRAM, QD
     Route: 065
  26. FOSCARNET SODIUM [Concomitant]
     Active Substance: FOSCARNET SODIUM
     Indication: Exercise tolerance decreased
     Dosage: 90 MILLIGRAM/KILOGRAM, BID
     Route: 065
  27. FOSCARNET SODIUM [Concomitant]
     Active Substance: FOSCARNET SODIUM
     Indication: Dyspnoea
     Dosage: UNK
     Route: 065
  28. FOSCARNET SODIUM [Concomitant]
     Active Substance: FOSCARNET SODIUM
     Indication: Dizziness
     Dosage: UNK
     Route: 042
  29. FOSCARNET SODIUM [Concomitant]
     Active Substance: FOSCARNET SODIUM
     Indication: Cytomegalovirus infection
  30. PIPERACILLIN SODIUM\TAZOBACTAM SODIUM [Concomitant]
     Active Substance: PIPERACILLIN SODIUM\TAZOBACTAM SODIUM
     Indication: Pneumonia
     Dosage: UNK
     Route: 065
  31. PIPERACILLIN SODIUM\TAZOBACTAM SODIUM [Concomitant]
     Active Substance: PIPERACILLIN SODIUM\TAZOBACTAM SODIUM
     Indication: Febrile neutropenia
  32. SEPTRA [Concomitant]
     Active Substance: SULFAMETHOXAZOLE\TRIMETHOPRIM
     Indication: Product used for unknown indication
     Dosage: UNK
     Route: 065
  33. PREVYMIS [Concomitant]
     Active Substance: LETERMOVIR
     Indication: Product used for unknown indication
     Dosage: 240 MILLIGRAM, QD
     Route: 065

REACTIONS (7)
  - Off label use [Recovered/Resolved]
  - Cytomegalovirus infection reactivation [Recovered/Resolved]
  - Epstein-Barr virus infection [Recovered/Resolved]
  - Infection reactivation [Recovered/Resolved]
  - Cytomegalovirus infection [Recovered/Resolved]
  - Retinitis viral [Recovered/Resolved]
  - Varicella zoster virus infection [Recovered/Resolved]
